FAERS Safety Report 8886925 (Version 3)
Quarter: 2013Q3

REPORT INFORMATION
  Report Type: Report from Study
  Country: CA (occurrence: CA)
  Receive Date: 20121105
  Receipt Date: 20130807
  Transmission Date: 20140515
  Serious: No
  Sender: FDA-Public Use
  Company Number: PHHY2011CA099871

PATIENT
  Sex: Female

DRUGS (4)
  1. GILENYA [Suspect]
     Indication: RELAPSING-REMITTING MULTIPLE SCLEROSIS
     Dosage: 0.5 MG, QD
     Route: 048
     Dates: start: 20111108
  2. COPAXONE [Concomitant]
     Dosage: 1 DF, QOD
     Dates: start: 200807
  3. AVONEX [Concomitant]
     Dosage: UNK UKN, UNK
  4. VITAMIN D [Concomitant]
     Dosage: UNK UKN, UNK

REACTIONS (1)
  - Blood pressure decreased [Recovering/Resolving]
